FAERS Safety Report 5055491-2 (Version None)
Quarter: 2006Q3

REPORT INFORMATION
  Report Type: 
  Country: None (occurrence: None)
  Receive Date: 20060714
  Receipt Date: 20060707
  Transmission Date: 20061208
  Serious: Yes (Other)
  Sender: FDA-Public Use
  Company Number: 2006084821

PATIENT
  Sex: Female

DRUGS (1)
  1. LYRICA [Suspect]
     Dosage: 150 MG (50 MG, 3 IN 1 D)

REACTIONS (3)
  - ABDOMINAL RIGIDITY [None]
  - MUSCLE TWITCHING [None]
  - MYOCLONUS [None]
